FAERS Safety Report 6967582-7 (Version None)
Quarter: 2010Q3

REPORT INFORMATION
  Report Type: 
  Country: None (occurrence: None)
  Receive Date: 20100907
  Receipt Date: 20100824
  Transmission Date: 20110219
  Serious: Yes (Hospitalization)
  Sender: FDA-Public Use
  Company Number: JP-PFIZER INC-2010111614

PATIENT
  Age: 56 Year
  Sex: Male

DRUGS (7)
  1. LIPITOR [Suspect]
     Dosage: 20 MG, 1X/DAY
     Route: 048
     Dates: start: 20090501, end: 20091002
  2. LIPITOR [Suspect]
     Dosage: 10 MG, 1X/DAY
     Route: 048
     Dates: start: 20091209, end: 20100516
  3. PAXIL [Concomitant]
     Dosage: UNK
     Dates: start: 20090501, end: 20100516
  4. SOLANAX [Concomitant]
     Dosage: UNK
     Dates: start: 20090501, end: 20100516
  5. HALCION [Concomitant]
     Dosage: UNK
     Dates: start: 20090501, end: 20100516
  6. ADALAT [Concomitant]
     Dosage: UNK
     Dates: start: 20090501, end: 20100516
  7. ALLOPURINOL [Concomitant]
     Dosage: UNK
     Dates: start: 20090501, end: 20100516

REACTIONS (2)
  - RESTLESSNESS [None]
  - RHABDOMYOLYSIS [None]
